FAERS Safety Report 8874325 (Version 2)
Quarter: 2012Q4

REPORT INFORMATION
  Report Type: 
  Country: US (occurrence: US)
  Receive Date: 20121030
  Receipt Date: 20121121
  Transmission Date: 20130627
  Serious: Yes (Hospitalization)
  Sender: FDA-Public Use
  Company Number: US-ROCHE-1147985

PATIENT
  Age: 61 Year
  Sex: Female

DRUGS (7)
  1. XOLAIR [Suspect]
     Indication: ASTHMA
     Route: 058
     Dates: start: 20100505
  2. SYMBICORT [Suspect]
     Indication: ASTHMA
     Route: 055
     Dates: start: 20121003
  3. TOBRAMYCIN [Concomitant]
  4. MOMETASONE [Concomitant]
  5. SODIUM CHLORIDE [Concomitant]
  6. NOVACORT (UNITED STATES) [Concomitant]
  7. PREDNISONE [Concomitant]

REACTIONS (5)
  - Asthma [Recovered/Resolved]
  - Bronchitis [Unknown]
  - Staphylococcal infection [Unknown]
  - Bacterial infection [Unknown]
  - Sinus headache [Unknown]
